FAERS Safety Report 7923222-1 (Version None)
Quarter: 2011Q4

REPORT INFORMATION
  Report Type: 
  Country: None (occurrence: None)
  Receive Date: 20111117
  Receipt Date: 20110131
  Transmission Date: 20120403
  Serious: No
  Sender: FDA-Public Use
  Company Number: US-AMGEN-USASP2011005746

PATIENT
  Age: 28 Year
  Sex: Female

DRUGS (2)
  1. ENBREL [Suspect]
     Indication: PSORIATIC ARTHROPATHY
  2. ENBREL [Suspect]
     Indication: PSORIASIS
     Dosage: 50 MG, QWK
     Dates: start: 20100831

REACTIONS (8)
  - ARTHRALGIA [None]
  - DRY SKIN [None]
  - BACK PAIN [None]
  - PRURITUS [None]
  - CONSTIPATION [None]
  - MUSCULOSKELETAL PAIN [None]
  - PAIN IN EXTREMITY [None]
  - RECTAL HAEMORRHAGE [None]
